FAERS Safety Report 9883322 (Version 2)
Quarter: 2014Q2

REPORT INFORMATION
  Report Type: Spontaneous
  Country: US (occurrence: US)
  Receive Date: 20140210
  Receipt Date: 20140402
  Transmission Date: 20141212
  Serious: Yes (Hospitalization, Other)
  Sender: FDA-Public Use
  Company Number: US-AMGEN-USASP2014008257

PATIENT
  Age: 72 Year
  Sex: Female
  Weight: 80.73 kg

DRUGS (1)
  1. ENBREL [Suspect]
     Indication: PSORIASIS
     Dosage: 50 MG, QWK
     Route: 058
     Dates: start: 2003, end: 20140304

REACTIONS (3)
  - Ankle fracture [Recovered/Resolved]
  - Fall [Recovered/Resolved]
  - Rash erythematous [Not Recovered/Not Resolved]
